FAERS Safety Report 7798641-7 (Version None)
Quarter: 2011Q4

REPORT INFORMATION
  Report Type: 
  Country: None (occurrence: None)
  Receive Date: 20111006
  Receipt Date: 20110927
  Transmission Date: 20120403
  Serious: Yes (Hospitalization)
  Sender: FDA-Public Use
  Company Number: CA-BIOGENIDEC-2010BI026745

PATIENT
  Age: 51 Year
  Sex: Female
  Weight: 60 kg

DRUGS (10)
  1. VITAMIN D [Concomitant]
     Indication: MULTIPLE SCLEROSIS
     Route: 048
     Dates: start: 20091214
  2. MODAFINIL [Concomitant]
     Indication: SOMNOLENCE
     Route: 048
     Dates: start: 20090630
  3. MODAFINIL [Concomitant]
  4. VITAMIN D [Concomitant]
  5. TRIMEBUTINE [Concomitant]
  6. TYSABRI [Suspect]
     Indication: MULTIPLE SCLEROSIS
     Route: 042
     Dates: start: 20080801, end: 20100623
  7. KETOROLAC TROMETHAMINE [Concomitant]
     Indication: MUSCULOSKELETAL PAIN
     Route: 048
     Dates: start: 20090630
  8. TAMSULOSIN HCL [Concomitant]
     Indication: DRUG THERAPY
     Route: 048
     Dates: start: 20090729
  9. TRIMEBUTINE [Concomitant]
     Indication: IRRITABLE BOWEL SYNDROME
     Route: 048
     Dates: start: 20080710
  10. LYRICA [Concomitant]
     Indication: BURNING SENSATION

REACTIONS (1)
  - MYELODYSPLASTIC SYNDROME [None]
